FAERS Safety Report 9219056 (Version 1)
Quarter: 2013Q2

REPORT INFORMATION
  Report Type: Spontaneous
  Country: US (occurrence: None)
  Receive Date: 20130405
  Receipt Date: 20130405
  Transmission Date: 20140414
  Serious: Yes (Other)
  Sender: FDA-Public Use
  Company Number: None

PATIENT
  Age: 69 Year
  Sex: Male

DRUGS (1)
  1. STIVARGA [Suspect]
     Dosage: STIVARGA 40MG 3 PO QD PO
     Route: 048
     Dates: start: 201212, end: 201303

REACTIONS (1)
  - Drug ineffective [None]
